FAERS Safety Report 16830881 (Version 1)
Quarter: 2019Q3

REPORT INFORMATION
  Report Type: Spontaneous
  Country: US (occurrence: US)
  Receive Date: 20190920
  Receipt Date: 20190920
  Transmission Date: 20191005
  Serious: No
  Sender: FDA-Public Use
  Company Number: US-SHIRE-US201930662

PATIENT
  Sex: Female

DRUGS (1)
  1. CUVITRU [Suspect]
     Active Substance: HUMAN IMMUNOGLOBULIN G
     Indication: CHRONIC INFLAMMATORY DEMYELINATING POLYRADICULONEUROPATHY
     Dosage: 30 GRAM, 1X/WEEK
     Route: 058

REACTIONS (9)
  - Pain in extremity [Unknown]
  - Headache [Unknown]
  - Head discomfort [Unknown]
  - Myalgia [Unknown]
  - Fatigue [Unknown]
  - Intentional product use issue [Unknown]
  - Alopecia [Unknown]
  - Product physical issue [None]
  - Product storage error [Unknown]
